FAERS Safety Report 6182835-0 (Version None)
Quarter: 2009Q2

REPORT INFORMATION
  Report Type: 
  Country: None (occurrence: None)
  Receive Date: 20090505
  Receipt Date: 20090421
  Transmission Date: 20091009
  Serious: Yes (Life-Threatening)
  Sender: FDA-Public Use
  Company Number: PAR_02943_2009

PATIENT
  Age: 26 Year
  Sex: Female

DRUGS (7)
  1. IBUPROFEN [Suspect]
     Indication: DRUG USE FOR UNKNOWN INDICATION
     Dosage: 9.6 G
     Dates: start: 20090315
  2. ACETAMINOPHEN [Suspect]
     Indication: DRUG USE FOR UNKNOWN INDICATION
     Dosage: 12 G
     Dates: start: 20090315
  3. CHANTIX [Suspect]
     Indication: SMOKING CESSATION THERAPY
     Dosage: DF ORAL
     Route: 048
     Dates: start: 20090309, end: 20090330
  4. ANADIN EXTRA (ANADIN EXTRA - ACETYLASLICYLIC ACID/ACETAMINOPHEN/CAFFEI [Suspect]
     Indication: DRUG USE FOR UNKNOWN INDICATION
     Dosage: 8 DF
     Dates: start: 20090315
  5. BECLOMETHASONE DIPROPIONATE [Concomitant]
  6. DIANETTE [Concomitant]
  7. SALBUTAMOL [Concomitant]

REACTIONS (3)
  - ALCOHOL USE [None]
  - GASTROINTESTINAL HAEMORRHAGE [None]
  - INTENTIONAL OVERDOSE [None]
